FAERS Safety Report 15499686 (Version 1)
Quarter: 2018Q4

REPORT INFORMATION
  Report Type: Spontaneous
  Country: US (occurrence: US)
  Receive Date: 20181015
  Receipt Date: 20181015
  Transmission Date: 20190205
  Serious: Yes (Life-Threatening, Hospitalization)
  Sender: FDA-Public Use
  Company Number: US-MYLANLABS-2018M1075616

PATIENT
  Age: 5 Year
  Sex: Male

DRUGS (1)
  1. BUPRENORPHINE. [Suspect]
     Active Substance: BUPRENORPHINE
     Indication: PRODUCT USED FOR UNKNOWN INDICATION
     Dosage: THE NUMBER OF PILLS INGESTED WAS UNCERTAIN, BUT THERE WAS REPORTEDLY ONE 8MG TABLET MISSING FROM ...
     Route: 048

REACTIONS (9)
  - Encephalitis [Recovered/Resolved with Sequelae]
  - Coma [Recovered/Resolved]
  - Accidental exposure to product by child [Recovered/Resolved with Sequelae]
  - Accidental overdose [Recovered/Resolved with Sequelae]
  - Necrosis [Recovered/Resolved with Sequelae]
  - Urinary incontinence [Unknown]
  - Cognitive disorder [Recovered/Resolved with Sequelae]
  - Brain herniation [Recovered/Resolved with Sequelae]
  - Cerebellar haemorrhage [Recovered/Resolved with Sequelae]
